FAERS Safety Report 7141267-9 (Version None)
Quarter: 2010Q4

REPORT INFORMATION
  Report Type: 
  Country: None (occurrence: None)
  Receive Date: 20101207
  Receipt Date: 20101130
  Transmission Date: 20110411
  Serious: Yes (Life-Threatening)
  Sender: FDA-Public Use
  Company Number: PL-CELGENEUS-129-C5013-10113167

PATIENT
  Sex: Male
  Weight: 103 kg

DRUGS (6)
  1. CC-5013\PLACEBO [Suspect]
     Indication: PROSTATE CANCER
     Route: 048
     Dates: start: 20101019
  2. CC-5013\PLACEBO [Suspect]
     Route: 048
     Dates: start: 20101109, end: 20101122
  3. DOCETAXEL [Suspect]
     Indication: PROSTATE CANCER
     Route: 065
     Dates: start: 20101019
  4. DOCETAXEL [Suspect]
     Route: 065
     Dates: start: 20101109, end: 20101109
  5. PREDNISONE [Suspect]
     Indication: PROSTATE CANCER
     Route: 065
     Dates: start: 20101019
  6. PREDNISONE [Suspect]
     Route: 065
     Dates: start: 20101109, end: 20101130

REACTIONS (1)
  - PERIPHERAL ISCHAEMIA [None]
